FAERS Safety Report 15480030 (Version 2)
Quarter: 2018Q4

REPORT INFORMATION
  Report Type: Spontaneous
  Country: US (occurrence: US)
  Receive Date: 20181009
  Receipt Date: 20181015
  Transmission Date: 20190205
  Serious: No
  Sender: FDA-Public Use
  Company Number: PHEH2018US042402

PATIENT

DRUGS (4)
  1. CARVEDILOL. [Suspect]
     Active Substance: CARVEDILOL
     Indication: CONGESTIVE CARDIOMYOPATHY
     Dosage: UNK UNK, QHS
     Route: 065
  2. TORASEMIDE [Suspect]
     Active Substance: TORSEMIDE
     Indication: CONGESTIVE CARDIOMYOPATHY
     Dosage: UNK UNK, QHS
     Route: 065
  3. SPIRONOLACTONE. [Suspect]
     Active Substance: SPIRONOLACTONE
     Indication: CONGESTIVE CARDIOMYOPATHY
     Dosage: UNK UNK, QHS
     Route: 065
  4. LOSARTAN POTASSIUM. [Suspect]
     Active Substance: LOSARTAN POTASSIUM
     Indication: CONGESTIVE CARDIOMYOPATHY
     Dosage: UNK UNK, QHS
     Route: 065

REACTIONS (7)
  - Dyspnoea [Recovering/Resolving]
  - Dehydration [Unknown]
  - Negative thoughts [Unknown]
  - Fear [Unknown]
  - Fatigue [Recovering/Resolving]
  - Weight decreased [Unknown]
  - Feeling abnormal [Unknown]
